FAERS Safety Report 7454380-3 (Version None)
Quarter: 2011Q2

REPORT INFORMATION
  Report Type: 
  Country: None (occurrence: None)
  Receive Date: 20110503
  Receipt Date: 20110414
  Transmission Date: 20111010
  Serious: Yes (Hospitalization, Other)
  Sender: FDA-Public Use
  Company Number: US-BAYER-2010-008919

PATIENT
  Age: 23 Year
  Sex: Female
  Weight: 109 kg

DRUGS (2)
  1. YASMIN [Suspect]
     Indication: PRODUCT USED FOR UNKNOWN INDICATION
     Dosage: UNK
     Route: 048
     Dates: start: 20040101, end: 20080201
  2. METFORMIN HYDROCHLORIDE [Concomitant]
     Dosage: 500 MG, BID

REACTIONS (1)
  - DEEP VEIN THROMBOSIS [None]
